FAERS Safety Report 24327530 (Version 1)
Quarter: 2024Q3

REPORT INFORMATION
  Report Type: Spontaneous
  Country: IT (occurrence: IT)
  Receive Date: 20240917
  Receipt Date: 20240917
  Transmission Date: 20241017
  Serious: Yes (Other)
  Sender: Steriscience PTE
  Company Number: IT-STERISCIENCE B.V.-2024-ST-001398

PATIENT

DRUGS (3)
  1. MIDAZOLAM [Suspect]
     Active Substance: MIDAZOLAM
     Indication: Neonatal seizure
     Dosage: MIDAZOLAM INFUSION WAS ADMINISTERED IN A PUSH AT A DOSE OF 0.15 MG/KG
     Route: 065
  2. MIDAZOLAM [Suspect]
     Active Substance: MIDAZOLAM
     Dosage: MIDAZOLAM WAS CONTINUED AS A CONTINUOUS INFUSION AT A DOSE OF 0.06 MG/ KG/H
     Route: 065
  3. MIDAZOLAM [Suspect]
     Active Substance: MIDAZOLAM
     Dosage: PROGRESSIVE INCREASE IN DOSE
     Route: 065

REACTIONS (5)
  - Depression [Unknown]
  - Sedation [Unknown]
  - Blood pressure decreased [Unknown]
  - Therapy non-responder [Unknown]
  - Off label use [Unknown]
